FAERS Safety Report 5504847-X (Version None)
Quarter: 2007Q4

REPORT INFORMATION
  Report Type: 
  Country: None (occurrence: None)
  Receive Date: 20071102
  Receipt Date: 20071025
  Transmission Date: 20080405
  Serious: Yes (Other)
  Sender: FDA-Public Use
  Company Number: PHFR2007GB02924

PATIENT
  Age: 10 Year
  Sex: Male
  Weight: 30 kg

DRUGS (1)
  1. EXJADE [Suspect]
     Indication: IRON OVERLOAD
     Dosage: 750MG/DAY
     Route: 048
     Dates: start: 20060501, end: 20071002

REACTIONS (2)
  - BLOOD UREA INCREASED [None]
  - SERUM FERRITIN INCREASED [None]
